FAERS Safety Report 18529404 (Version 1)
Quarter: 2020Q4

REPORT INFORMATION
  Report Type: Report from Study
  Country: US (occurrence: US)
  Receive Date: 20201120
  Receipt Date: 20201120
  Transmission Date: 20210114
  Serious: Yes (Other)
  Sender: FDA-Public Use
  Company Number: US-GILEAD-2020-0504467

PATIENT
  Age: 36 Year
  Sex: Female
  Weight: 100 kg

DRUGS (5)
  1. FERROUS SULFATE. [Concomitant]
     Active Substance: FERROUS SULFATE
     Indication: ANAEMIA
  2. PRENATAL VITAMINS [MINERALS NOS;VITAMINS NOS] [Concomitant]
     Active Substance: MINERALS\VITAMINS
     Dosage: UNK
  3. REMDESIVIR. [Suspect]
     Active Substance: REMDESIVIR
     Indication: COVID-19
     Dosage: 200/100 MG
     Route: 042
     Dates: start: 20200519, end: 20200528
  4. ALBUTEROL [SALBUTAMOL] [Concomitant]
     Active Substance: ALBUTEROL
     Indication: DYSPNOEA
  5. DOCUSATE [Concomitant]
     Active Substance: DOCUSATE
     Indication: CONSTIPATION

REACTIONS (4)
  - Retained placenta or membranes [Unknown]
  - Haemorrhage in pregnancy [Unknown]
  - Maternal exposure during pregnancy [Recovered/Resolved]
  - COVID-19 pneumonia [Unknown]

NARRATIVE: CASE EVENT DATE: 2020
